FAERS Safety Report 8235555-2 (Version None)
Quarter: 2012Q1

REPORT INFORMATION
  Report Type: 
  Country: None (occurrence: None)
  Receive Date: 20120323
  Receipt Date: 20120312
  Transmission Date: 20120608
  Serious: Yes (Other)
  Sender: FDA-Public Use
  Company Number: JPI-P-020307

PATIENT
  Age: 49 Year
  Sex: Female
  Weight: 87.5442 kg

DRUGS (3)
  1. XYREM [Suspect]
     Indication: NARCOLEPSY
     Dosage: 4.5 GM (2.25 MG,2 IN 1 D),ORAL
     Route: 048
     Dates: start: 20120224
  2. XYREM [Suspect]
     Indication: SOMNOLENCE
     Dosage: 4.5 GM (2.25 MG,2 IN 1 D),ORAL
     Route: 048
     Dates: start: 20120224
  3. MULTIPLE UNSPECIIFED MEDICATIONS [Concomitant]

REACTIONS (11)
  - INITIAL INSOMNIA [None]
  - THROMBOSIS [None]
  - FEELING HOT [None]
  - ERYTHEMA [None]
  - HEADACHE [None]
  - BLOOD PRESSURE INCREASED [None]
  - VISUAL BRIGHTNESS [None]
  - OEDEMA PERIPHERAL [None]
  - INCONTINENCE [None]
  - BALANCE DISORDER [None]
  - TUNNEL VISION [None]
